FAERS Safety Report 23238286 (Version 1)
Quarter: 2023Q4

REPORT INFORMATION
  Report Type: Spontaneous
  Country: BR (occurrence: BR)
  Receive Date: 20231129
  Receipt Date: 20231129
  Transmission Date: 20240109
  Serious: Yes (Death)
  Sender: FDA-Public Use
  Company Number: BR-NOVOPROD-1143705

PATIENT
  Age: 27 Year
  Sex: Female
  Weight: 88 kg

DRUGS (3)
  1. OZEMPIC [Suspect]
     Active Substance: SEMAGLUTIDE
     Indication: Obesity
     Dosage: 2 MG
     Dates: start: 2023
  2. TOPIRAMATE [Suspect]
     Active Substance: TOPIRAMATE
     Indication: Obesity
     Dosage: UNK
     Dates: start: 2023
  3. BUPROPION [Suspect]
     Active Substance: BUPROPION
     Indication: Obesity
     Dosage: UNK
     Dates: start: 2023

REACTIONS (2)
  - Completed suicide [Fatal]
  - Off label use [Not Recovered/Not Resolved]

NARRATIVE: CASE EVENT DATE: 20230101
